FAERS Safety Report 10571911 (Version 2)
Quarter: 2014Q4

REPORT INFORMATION
  Report Type: Report from Study
  Country: US (occurrence: US)
  Receive Date: 20141107
  Receipt Date: 20141128
  Transmission Date: 20150529
  Serious: Yes (Other)
  Sender: FDA-Public Use
  Company Number: US-009507513-1411USA000810

PATIENT
  Age: 78 Year

DRUGS (2)
  1. VELCADE [Suspect]
     Active Substance: BORTEZOMIB
     Indication: PLASMA CELL MYELOMA
     Dosage: 3.5 MG, FREQUENCY:D1,4,8,11
     Route: 042
     Dates: start: 20130617, end: 20130715
  2. DECADRON [Suspect]
     Active Substance: DEXAMETHASONE
     Indication: PLASMA CELL MYELOMA
     Dosage: 10 MG,FREQUENCY:D1,2,8,9
     Route: 048
     Dates: start: 20130617, end: 20140715

REACTIONS (1)
  - Peripheral motor neuropathy [Unknown]

NARRATIVE: CASE EVENT DATE: 20130715
